FAERS Safety Report 10128523 (Version 2)
Quarter: 2014Q2

REPORT INFORMATION
  Report Type: Report from Study
  Country: US (occurrence: US)
  Receive Date: 20140428
  Receipt Date: 20140428
  Transmission Date: 20141212
  Serious: Yes (Hospitalization, Other)
  Sender: FDA-Public Use
  Company Number: US-CELGENEUS-163-C5013-14014128

PATIENT
  Age: 78 Year
  Sex: Female
  Weight: 82.3 kg

DRUGS (13)
  1. VIDAZA [Suspect]
     Indication: ACUTE MYELOID LEUKAEMIA
     Dosage: 75 MILLIGRAM/SQ. METER
     Route: 058
     Dates: start: 20130513, end: 20130519
  2. VIDAZA [Suspect]
     Dosage: 75 MILLIGRAM/SQ. METER
     Route: 058
     Dates: start: 20131115, end: 20131121
  3. CEFTIN [Concomitant]
     Indication: ANTI-INFECTIVE THERAPY
     Dosage: 500 MILLIGRAM
     Route: 048
     Dates: start: 20140115, end: 20140130
  4. CARDIZEM [Concomitant]
     Indication: CARDIAC DISORDER
     Dosage: 180 MILLIGRAM
     Route: 048
     Dates: start: 20130828, end: 20140130
  5. MOEXIPRIL [Concomitant]
     Indication: CARDIAC DISORDER
     Dosage: 7.5 MILLIGRAM
     Route: 048
     Dates: start: 20140102, end: 20140130
  6. MIRALAX [Concomitant]
     Indication: LAXATIVE SUPPORTIVE CARE
     Dosage: 17 GRAM
     Route: 048
     Dates: start: 20131208, end: 20140130
  7. NOXAFIL [Concomitant]
     Indication: PROPHYLAXIS
     Dosage: 600 MILLIGRAM
     Route: 048
     Dates: start: 20131001, end: 20140130
  8. NOXAFIL [Concomitant]
     Indication: FEBRILE NEUTROPENIA
  9. POTASSIUM CHLORIDE [Concomitant]
     Indication: ELECTROLYTE SUBSTITUTION THERAPY
     Dosage: 20 MILLIEQUIVALENTS
     Route: 048
     Dates: start: 20130920, end: 20140130
  10. COMPAZINE [Concomitant]
     Indication: PROPHYLAXIS
     Dosage: 40 MILLIGRAM
     Route: 048
     Dates: start: 20140109, end: 20140130
  11. ACYCLOVIR [Concomitant]
     Indication: FEBRILE NEUTROPENIA
     Dosage: 1600 MILLIGRAM
     Route: 048
     Dates: start: 20130828, end: 20140130
  12. ACYCLOVIR [Concomitant]
     Indication: PROPHYLAXIS
  13. O2 [Concomitant]
     Indication: DYSPNOEA
     Route: 065
     Dates: start: 201401

REACTIONS (2)
  - Febrile neutropenia [Not Recovered/Not Resolved]
  - Lung adenocarcinoma [Not Recovered/Not Resolved]
